FAERS Safety Report 9519305 (Version 1)
Quarter: 2013Q1

REPORT INFORMATION
  Report Type: Spontaneous
  Country: US (occurrence: None)
  Receive Date: 20130305
  Receipt Date: 20130305
  Transmission Date: 20140127
  Serious: Yes (Other)
  Sender: FDA-Public Use
  Company Number: 163-21880-12103897

PATIENT
  Age: 66 Year
  Sex: Male

DRUGS (3)
  1. REVLIMID [Suspect]
     Indication: PLASMA CELL MYELOMA
     Dosage: 10 MG, 14 IN 14 D, PO
     Route: 048
     Dates: start: 201005
  2. DECADRON [Concomitant]
  3. NAUSEA MEDICINE (OTHER ANTIEMETICS) (UNKNOWN) [Concomitant]

REACTIONS (3)
  - Gait disturbance [None]
  - Malaise [None]
  - Disease progression [None]
